FAERS Safety Report 7016948-8 (Version None)
Quarter: 2010Q3

REPORT INFORMATION
  Report Type: 
  Country: None (occurrence: None)
  Receive Date: 20100927
  Receipt Date: 20100920
  Transmission Date: 20110219
  Serious: Yes (Other)
  Sender: FDA-Public Use
  Company Number: AU-PFIZER INC-2010118924

PATIENT
  Age: 51 Year
  Sex: Female

DRUGS (2)
  1. LIPITOR [Suspect]
     Indication: MYOCARDIAL INFARCTION
     Dosage: 80 MG, UNK
  2. LIPITOR [Suspect]
     Indication: CORONARY ARTERY DISSECTION

REACTIONS (3)
  - DIABETES MELLITUS [None]
  - MUSCULOSKELETAL STIFFNESS [None]
  - MYALGIA [None]
